FAERS Safety Report 10766040 (Version 1)
Quarter: 2015Q1

REPORT INFORMATION
  Report Type: Spontaneous
  Country: US (occurrence: None)
  Receive Date: 20150204
  Receipt Date: 20150204
  Transmission Date: 20150721
  Serious: No
  Sender: FDA-Public Use
  Company Number: None

PATIENT
  Age: 34 Year
  Sex: Female
  Weight: 109.77 kg

DRUGS (2)
  1. PROAIR HFA [Suspect]
     Active Substance: ALBUTEROL SULFATE
     Indication: INFLUENZA
     Route: 055
     Dates: start: 20150201, end: 20150201
  2. PROAIR HFA [Suspect]
     Active Substance: ALBUTEROL SULFATE
     Indication: WHEEZING
     Route: 055
     Dates: start: 20150201, end: 20150201

REACTIONS (6)
  - Chest discomfort [None]
  - Dyspnoea [None]
  - Hypersensitivity [None]
  - Muscle tightness [None]
  - Musculoskeletal pain [None]
  - Flushing [None]

NARRATIVE: CASE EVENT DATE: 20150201
